FAERS Safety Report 9909543 (Version 2)
Quarter: 2014Q1

REPORT INFORMATION
  Report Type: Spontaneous
  Country: US (occurrence: US)
  Receive Date: 20140219
  Receipt Date: 20140219
  Transmission Date: 20141002
  Serious: No
  Sender: FDA-Public Use
  Company Number: US-GILEAD-2012-0055528

PATIENT
  Sex: Female

DRUGS (1)
  1. LETAIRIS [Suspect]
     Indication: PULMONARY HYPERTENSION
     Dosage: 5 MG, UNK
     Route: 048
     Dates: start: 20120403

REACTIONS (5)
  - Haemorrhage [Unknown]
  - Small intestinal haemorrhage [Unknown]
  - Telangiectasia [Unknown]
  - Scleroderma [Unknown]
  - Anaemia [Unknown]
